FAERS Safety Report 12283683 (Version 4)
Quarter: 2016Q4

REPORT INFORMATION
  Report Type: Report from Study
  Country: CA (occurrence: CA)
  Receive Date: 20160419
  Receipt Date: 20161026
  Transmission Date: 20170207
  Serious: Yes (Hospitalization, Other)
  Sender: FDA-Public Use
  Company Number: CA-GILEAD-2015-0175081

PATIENT
  Age: 82 Year
  Sex: Female

DRUGS (13)
  1. FOLIC ACID. [Concomitant]
     Active Substance: FOLIC ACID
     Dosage: 5 MG, QD
  2. ALENDRONATE [Concomitant]
     Active Substance: ALENDRONATE SODIUM
     Dosage: 7 MG, Q1WK
  3. ZYDELIG [Suspect]
     Active Substance: IDELALISIB
     Dosage: 100 MG, BID
     Route: 048
     Dates: start: 20160406
  4. TYLENOL WITH CODEINE [Concomitant]
     Active Substance: ACETAMINOPHEN\CODEINE PHOSPHATE
     Dosage: PRN
  5. BISOPROLOL [Concomitant]
     Active Substance: BISOPROLOL
     Dosage: 5 MG 1/2 TABLET
  6. ZYDELIG [Suspect]
     Active Substance: IDELALISIB
     Indication: CHRONIC LYMPHOCYTIC LEUKAEMIA
     Dosage: 150 MG, BID
     Route: 048
     Dates: start: 20150814, end: 201604
  7. RITUXAN [Suspect]
     Active Substance: RITUXIMAB
     Dosage: UNK
     Route: 042
     Dates: start: 20160202
  8. BISOPROLOL [Concomitant]
     Active Substance: BISOPROLOL
     Dosage: 7.5 Q 2D
  9. RITUXAN [Suspect]
     Active Substance: RITUXIMAB
     Indication: CHRONIC LYMPHOCYTIC LEUKAEMIA
     Dosage: UNK
     Route: 042
     Dates: start: 20151204
  10. PANTOPRAZOLE [Concomitant]
     Active Substance: PANTOPRAZOLE SODIUM
     Dosage: 40 MG, QD
  11. CALCIUM WITH VITAMIN D3            /00944201/ [Concomitant]
  12. VITAMIN D                          /00107901/ [Concomitant]
     Active Substance: ERGOCALCIFEROL
  13. ZOPICLONE [Concomitant]
     Active Substance: ZOPICLONE
     Dosage: 7.5 MG, QD IN AM PRN

REACTIONS (26)
  - Hyperthyroidism [Recovered/Resolved]
  - Fatigue [Unknown]
  - Varicose vein [Unknown]
  - Pain [Recovering/Resolving]
  - Feeling abnormal [Unknown]
  - Abdominal pain upper [Recovering/Resolving]
  - Visual impairment [Unknown]
  - Influenza [Unknown]
  - Immunodeficiency [Unknown]
  - Abdominal discomfort [Recovered/Resolved]
  - Asthenia [Unknown]
  - Tinnitus [Recovered/Resolved]
  - Stomatitis [Recovered/Resolved]
  - Gastroenteritis viral [Unknown]
  - Dyspnoea [Recovering/Resolving]
  - Joint swelling [Unknown]
  - Vomiting [Recovered/Resolved]
  - Chest discomfort [Recovering/Resolving]
  - Viral infection [Unknown]
  - Nausea [Recovered/Resolved]
  - Constipation [Unknown]
  - Anorectal discomfort [Recovering/Resolving]
  - Eye disorder [Unknown]
  - Limb mass [Recovering/Resolving]
  - Decreased appetite [Recovered/Resolved]
  - Asthenia [Unknown]

NARRATIVE: CASE EVENT DATE: 201509
